FAERS Safety Report 7177618-9 (Version None)
Quarter: 2010Q4

REPORT INFORMATION
  Report Type: 
  Country: None (occurrence: None)
  Receive Date: 20101220
  Receipt Date: 20101213
  Transmission Date: 20110411
  Serious: Yes (Other)
  Sender: FDA-Public Use
  Company Number: US-BIOGENIDEC-2010BI041682

PATIENT
  Age: 39 Year
  Sex: Female

DRUGS (3)
  1. AVONEX [Suspect]
     Indication: MULTIPLE SCLEROSIS
     Route: 030
     Dates: start: 20021207, end: 20090306
  2. AVONEX [Suspect]
     Route: 030
     Dates: start: 20091211, end: 20101119
  3. AVONEX [Suspect]
     Route: 030
     Dates: start: 20101201

REACTIONS (2)
  - ABORTION SPONTANEOUS [None]
  - NASOPHARYNGITIS [None]
